FAERS Safety Report 10581388 (Version 1)
Quarter: 2014Q4

REPORT INFORMATION
  Report Type: Spontaneous
  Country: US (occurrence: None)
  Receive Date: 20141112
  Receipt Date: 20141112
  Transmission Date: 20150529
  Serious: Yes (Disabling)
  Sender: FDA-Public Use
  Company Number: None

PATIENT
  Age: 32 Year
  Sex: Female
  Weight: 99.79 kg

DRUGS (1)
  1. MIRENA [Suspect]
     Active Substance: LEVONORGESTREL
     Indication: CONTRACEPTION
     Dates: start: 20130710, end: 20141111

REACTIONS (8)
  - Mood swings [None]
  - Ovarian cyst [None]
  - Pelvic pain [None]
  - Palpitations [None]
  - Depression [None]
  - Alopecia [None]
  - Muscle spasms [None]
  - Bacterial infection [None]

NARRATIVE: CASE EVENT DATE: 20141111
